FAERS Safety Report 16478393 (Version 1)
Quarter: 2019Q2

REPORT INFORMATION
  Report Type: Spontaneous
  Country: GB (occurrence: GB)
  Receive Date: 20190626
  Receipt Date: 20190626
  Transmission Date: 20190711
  Serious: Yes (Hospitalization, Other)
  Sender: FDA-Public Use
  Company Number: GB-ASTELLAS-2019US026137

PATIENT
  Age: 52 Year
  Sex: Male

DRUGS (8)
  1. TACROLIMUS. [Suspect]
     Active Substance: TACROLIMUS
     Indication: LIVER TRANSPLANT
     Dosage: 4 MG, TWICE DAILY (TARGET LEVELS OF 5-7 NG/ML)
     Route: 065
  2. TACROLIMUS. [Suspect]
     Active Substance: TACROLIMUS
     Dosage: 0.5 MG, TWICE DAILY (MAINTAINING TACROLIMUS LEVELS OF 5-7 NG/ML)
     Route: 065
  3. PREDNISOLONE. [Concomitant]
     Active Substance: PREDNISOLONE
     Indication: LIVER TRANSPLANT
     Route: 048
  4. MYCOPHENOLATE MOFETIL. [Concomitant]
     Active Substance: MYCOPHENOLATE MOFETIL
     Indication: LIVER TRANSPLANT
     Route: 065
  5. VALGANCICLOVIR. [Concomitant]
     Active Substance: VALGANCICLOVIR
     Indication: ANTIVIRAL PROPHYLAXIS
  6. TACROLIMUS. [Suspect]
     Active Substance: TACROLIMUS
     Route: 065
  7. HYDROCORTISONE. [Concomitant]
     Active Substance: HYDROCORTISONE
     Indication: LIVER TRANSPLANT
     Route: 042
  8. COTRIMOXAZOLE [Concomitant]
     Active Substance: SULFAMETHOXAZOLE\TRIMETHOPRIM
     Indication: ANTIFUNGAL PROPHYLAXIS
     Route: 065

REACTIONS (7)
  - Clostridium difficile colitis [Unknown]
  - Arteriovenous fistula aneurysm [Unknown]
  - Cytomegalovirus infection [Recovered/Resolved]
  - Immunosuppressant drug level increased [Recovered/Resolved]
  - Productive cough [Unknown]
  - Aortoenteric fistula [Unknown]
  - Renal impairment [Recovered/Resolved]
